FAERS Safety Report 4798049-2 (Version None)
Quarter: 2005Q3

REPORT INFORMATION
  Report Type: 
  Country: None (occurrence: None)
  Receive Date: 20050929
  Receipt Date: 20050815
  Transmission Date: 20060218
  Serious: No
  Sender: FDA-Public Use
  Company Number: 05P-163-0308315-00

PATIENT
  Age: 56 Year
  Sex: Female
  Weight: 63.5036 kg

DRUGS (8)
  1. HUMIRA [Suspect]
     Indication: RHEUMATOID ARTHRITIS
     Dosage: 40 MG, 1 IN 2 WK, SUBCUTANEOUS
     Route: 058
     Dates: start: 20040501
  2. VENLAFAXINE HYDROCHLORIDE [Concomitant]
  3. LITHIUM [Concomitant]
  4. CLONAZEPAM [Concomitant]
  5. THYROID TAB [Concomitant]
  6. ENSURE [Concomitant]
  7. MULTI-VITAMINS [Concomitant]
  8. CALCIUM CARBONATE [Concomitant]

REACTIONS (2)
  - CANDIDIASIS [None]
  - TOOTH EROSION [None]
